FAERS Safety Report 9057275 (Version 1)
Quarter: 2013Q1

REPORT INFORMATION
  Report Type: Report from Study
  Country: JP (occurrence: JP)
  Receive Date: 20130131
  Receipt Date: 20130131
  Transmission Date: 20140127
  Serious: Yes (Other)
  Sender: FDA-Public Use
  Company Number: JP-GLAXOSMITHKLINE-B0860324A

PATIENT
  Age: 76 None
  Sex: Female
  Weight: 63 kg

DRUGS (6)
  1. TYKERB [Suspect]
     Indication: BREAST CANCER
     Route: 048
     Dates: start: 20100204, end: 20110112
  2. TYKERB [Suspect]
     Indication: BREAST CANCER
     Route: 048
     Dates: start: 20110301
  3. XELODA [Suspect]
     Route: 048
     Dates: start: 20100204, end: 20101006
  4. XELODA [Suspect]
     Route: 048
     Dates: start: 20101014, end: 20110112
  5. XELODA [Suspect]
     Route: 048
     Dates: start: 20110301
  6. PYDOXAL [Concomitant]
     Indication: PROPHYLAXIS
     Route: 048
     Dates: start: 20100204

REACTIONS (9)
  - Enteritis infectious [Recovered/Resolved]
  - Renal impairment [Recovering/Resolving]
  - Hypoaesthesia [Not Recovered/Not Resolved]
  - Palmar-plantar erythrodysaesthesia syndrome [Not Recovered/Not Resolved]
  - Fatigue [Not Recovered/Not Resolved]
  - Insomnia [Recovered/Resolved]
  - Rash [Not Recovered/Not Resolved]
  - Blepharitis [Recovered/Resolved]
  - Diarrhoea [Recovered/Resolved]
